FAERS Safety Report 4314120-3 (Version None)
Quarter: 2004Q1

REPORT INFORMATION
  Report Type: 
  Country: None (occurrence: None)
  Receive Date: 20040308
  Receipt Date: 20040308
  Transmission Date: 20041129
  Serious: Yes (Other)
  Sender: FDA-Public Use
  Company Number: None

PATIENT
  Sex: Female
  Weight: 62.5964 kg

DRUGS (3)
  1. PAXIL CR [Suspect]
     Indication: DEPRESSION
     Dosage: 37.5 MG Q.D. ORAL
     Route: 048
     Dates: start: 19920415, end: 20040308
  2. PAXIL CR [Suspect]
     Indication: POST-TRAUMATIC STRESS DISORDER
     Dosage: 37.5 MG Q.D. ORAL
     Route: 048
     Dates: start: 19920415, end: 20040308
  3. BUSPIRONE HCL [Suspect]
     Indication: ANXIETY
     Dosage: 5 MG QD ORAL
     Route: 048
     Dates: start: 19920415, end: 20040308

REACTIONS (9)
  - CONSTIPATION [None]
  - DYSPEPSIA [None]
  - DYSPHEMIA [None]
  - FEELING ABNORMAL [None]
  - HYPERHIDROSIS [None]
  - MALAISE [None]
  - MUSCLE SPASMS [None]
  - PRURITUS [None]
  - VISION BLURRED [None]
